FAERS Safety Report 6786072-8 (Version None)
Quarter: 2010Q2

REPORT INFORMATION
  Report Type: 
  Country: None (occurrence: None)
  Receive Date: 20100623
  Receipt Date: 20100611
  Transmission Date: 20101027
  Serious: Yes (Other)
  Sender: FDA-Public Use
  Company Number: PHHY2010ES38810

PATIENT
  Age: 28 Year
  Sex: Female

DRUGS (1)
  1. ACLASTA [Suspect]
     Indication: OSTEOPOROSIS
     Dosage: 5 MG, UNK
     Route: 042
     Dates: start: 20100610

REACTIONS (5)
  - BLOOD PHOSPHORUS DECREASED [None]
  - FEELING COLD [None]
  - MALAISE [None]
  - TETANY [None]
  - TRISMUS [None]
